FAERS Safety Report 7593765-1 (Version None)
Quarter: 2011Q3

REPORT INFORMATION
  Report Type: 
  Country: None (occurrence: None)
  Receive Date: 20110706
  Receipt Date: 20110623
  Transmission Date: 20111222
  Serious: Yes (Hospitalization, Other)
  Sender: FDA-Public Use
  Company Number: DE-UCBSA-033720

PATIENT
  Sex: Female

DRUGS (6)
  1. HAEMITON [Concomitant]
     Dosage: 0.075/DAY
  2. KEPPRA [Suspect]
     Dates: start: 20110523
  3. DIOVAN [Concomitant]
     Dosage: 1-0-1
  4. LEVETIRACETAM [Suspect]
     Dates: start: 20110510, end: 20110523
  5. KEPPRA [Suspect]
     Dates: start: 20040101
  6. RUDOTEL [Concomitant]

REACTIONS (5)
  - HYPERTENSION [None]
  - EPILEPSY [None]
  - MUSCLE SPASMS [None]
  - DRUG INEFFECTIVE [None]
  - AGGRESSION [None]
